FAERS Safety Report 10154069 (Version 1)
Quarter: 2014Q2

REPORT INFORMATION
  Report Type: Spontaneous
  Country: US (occurrence: None)
  Receive Date: 20140502
  Receipt Date: 20140502
  Transmission Date: 20141212
  Serious: Yes (Hospitalization)
  Sender: FDA-Public Use
  Company Number: UTC-047664

PATIENT
  Age: 63 Year
  Sex: Female

DRUGS (1)
  1. TYVASO (0.6 MILLIGRAM/MILLILITERS, AEROSOL FOR INHALATION) (TREPROSTINIL SODIUM) [Suspect]
     Indication: PULMONARY ARTERIAL HYPERTENSION
     Dosage: 0.072 MCG (0.018 MCG, 4 IN 1 D)
     Route: 055
     Dates: start: 20140306, end: 20140310

REACTIONS (2)
  - Cardiac arrest [None]
  - Adverse drug reaction [None]
